FAERS Safety Report 7298276-9 (Version None)
Quarter: 2011Q1

REPORT INFORMATION
  Report Type: 
  Country: None (occurrence: None)
  Receive Date: 20110217
  Receipt Date: 20100121
  Transmission Date: 20110831
  Serious: No
  Sender: FDA-Public Use
  Company Number: US-PFIZER INC-2009297619

PATIENT
  Sex: Female
  Weight: 102 kg

DRUGS (17)
  1. GLUCOSAMINE [Concomitant]
     Dosage: UNK
  2. VALSARTAN [Concomitant]
     Dosage: UNK
  3. ACCUPRIL [Concomitant]
     Dosage: UNK
  4. LIPITOR [Concomitant]
     Dosage: UNK
  5. CELEBREX [Concomitant]
     Indication: ARTHRITIS
     Dosage: UNK
  6. OMEPRAZOLE [Concomitant]
     Dosage: UNK
  7. PEPCID [Concomitant]
     Dosage: UNK
  8. ATENOLOL [Concomitant]
     Dosage: UNK
  9. FORADIL [Concomitant]
     Dosage: UNK
  10. ACETYLSALICYLIC ACID [Concomitant]
     Dosage: UNK
  11. CALCIUM [Concomitant]
     Dosage: UNK
  12. MONTELUKAST [Concomitant]
     Dosage: UNK
  13. MULTI-VITAMINS [Concomitant]
     Dosage: UNK
  14. XALATAN [Suspect]
     Indication: GLAUCOMA
     Dosage: 1 GTT, 1X/DAY
     Dates: start: 19990101
  15. SYNTHROID [Concomitant]
     Dosage: UNK
  16. ZYBAN [Concomitant]
     Dosage: UNK
  17. CHONDROITIN [Concomitant]
     Dosage: UNK

REACTIONS (1)
  - DRUG INEFFECTIVE [None]
